FAERS Safety Report 17682772 (Version 1)
Quarter: 2020Q2

REPORT INFORMATION
  Report Type: Spontaneous
  Country: DE (occurrence: DE)
  Receive Date: 20200419
  Receipt Date: 20200419
  Transmission Date: 20200714
  Serious: Yes (Congenital Anomaly, Other)
  Sender: FDA-Public Use
  Company Number: DE-AUROBINDO-AUR-APL-2020-018987

PATIENT
  Sex: Male
  Weight: 3.6 kg

DRUGS (2)
  1. ARIPIPRAZOLE. [Suspect]
     Active Substance: ARIPIPRAZOLE
     Indication: PSYCHOTIC DISORDER
     Dosage: 15 MILLIGRAM, ONCE A DAY, 1 {TRIMESTER} 0. - 25.3. GESTATIONAL WEEK
     Route: 064
  2. FOLIC ACID. [Concomitant]
     Active Substance: FOLIC ACID
     Indication: PROPHYLAXIS OF NEURAL TUBE DEFECT
     Dosage: UNK, 1 {TRIMESTER} TRIMESTER: LONG TERM EXPOSURE
     Route: 064

REACTIONS (3)
  - Epispadias [Not Recovered/Not Resolved]
  - Cloacal exstrophy [Not Recovered/Not Resolved]
  - Foetal exposure during pregnancy [Unknown]
